FAERS Safety Report 7884358-7 (Version None)
Quarter: 2011Q4

REPORT INFORMATION
  Report Type: 
  Country: None (occurrence: None)
  Receive Date: 20111102
  Receipt Date: 20111031
  Transmission Date: 20120403
  Serious: Yes (Other)
  Sender: FDA-Public Use
  Company Number: JP-PFIZER INC-2011265164

PATIENT
  Age: 57 Year
  Sex: Female

DRUGS (5)
  1. LANSOPRAZOLE [Concomitant]
     Dosage: UNK
  2. LYRICA [Suspect]
     Dosage: 150 MG DIVIDED INTO TWICE A DAY
     Dates: start: 20111005
  3. MIYA BM [Concomitant]
     Dosage: UNK
  4. SULFAMETHOXAZOLE [Concomitant]
     Dosage: UNK
  5. CARBOHYDRATES [Concomitant]
     Dosage: UNK

REACTIONS (2)
  - CALCULUS URINARY [None]
  - URINE ABNORMALITY [None]
